FAERS Safety Report 10629431 (Version 1)
Quarter: 2014Q4

REPORT INFORMATION
  Report Type: Spontaneous
  Country: US (occurrence: None)
  Receive Date: 20141203
  Receipt Date: 20141203
  Transmission Date: 20150529
  Serious: Yes (Other)
  Sender: FDA-Public Use
  Company Number: None

PATIENT
  Age: 37 Year
  Sex: Female
  Weight: 63.5 kg

DRUGS (2)
  1. PHENERGAN [Suspect]
     Active Substance: PROMETHAZINE HYDROCHLORIDE
     Indication: VOMITING
     Dosage: INTO A VEIN
     Dates: start: 20141126, end: 20141126
  2. PHENERGAN [Suspect]
     Active Substance: PROMETHAZINE HYDROCHLORIDE
     Dosage: INTO A VEIN
     Dates: start: 20141126, end: 20141126

REACTIONS (7)
  - Wrong technique in drug usage process [None]
  - Hypoaesthesia [None]
  - Injection site extravasation [None]
  - Skin discolouration [None]
  - Infusion site pain [None]
  - Injection site pain [None]
  - Erythema [None]

NARRATIVE: CASE EVENT DATE: 20141126
